FAERS Safety Report 24049126 (Version 2)
Quarter: 2024Q3

REPORT INFORMATION
  Report Type: Spontaneous
  Country: US (occurrence: US)
  Receive Date: 20240704
  Receipt Date: 20240724
  Transmission Date: 20241016
  Serious: No
  Sender: JOHNSON AND JOHNSON
  Company Number: US-JNJFOC-20240667363

PATIENT
  Age: 46 Year
  Sex: Female
  Weight: 120 kg

DRUGS (1)
  1. REMICADE [Suspect]
     Active Substance: INFLIXIMAB
     Indication: Crohn^s disease
     Route: 041
     Dates: start: 20240621

REACTIONS (2)
  - Device dislocation [Unknown]
  - Poor venous access [Unknown]

NARRATIVE: CASE EVENT DATE: 20240621
